FAERS Safety Report 8966473 (Version 1)
Quarter: 2012Q4

REPORT INFORMATION
  Report Type: Spontaneous
  Country: AT (occurrence: None)
  Receive Date: 20121206
  Receipt Date: 20121206
  Transmission Date: 20130627
  Serious: Yes (Hospitalization)
  Sender: FDA-Public Use
  Company Number: AT-010246

PATIENT
  Age: 69 Year
  Sex: Male

DRUGS (1)
  1. DEGARELIX [Suspect]
     Indication: PROSTATE CANCER
     Dosage: 80 mg 1/x month Subcutaneous
     Route: 058

REACTIONS (3)
  - Erythema [None]
  - Altered state of consciousness [None]
  - Pyrexia [None]
